FAERS Safety Report 8361614-X (Version None)
Quarter: 2012Q2

REPORT INFORMATION
  Report Type: 
  Country: None (occurrence: None)
  Receive Date: 20120515
  Receipt Date: 20120430
  Transmission Date: 20120825
  Serious: Yes (Death)
  Sender: FDA-Public Use
  Company Number: GB-PURDUE-USA-2010-0048352

PATIENT
  Age: 63 Year
  Sex: Female

DRUGS (10)
  1. GLUCOSAMINE [Concomitant]
     Indication: PRODUCT USED FOR UNKNOWN INDICATION
     Dosage: 1500 MG, DAILY
     Route: 048
  2. TRAMADOL HCL [Suspect]
     Indication: ARTHRITIS
     Dosage: 100 MG, TWICE
     Route: 048
     Dates: start: 20050428, end: 20100615
  3. GARLIC                             /01570501/ [Concomitant]
     Indication: PRODUCT USED FOR UNKNOWN INDICATION
  4. SILYBUM MARIANUM [Concomitant]
     Indication: PRODUCT USED FOR UNKNOWN INDICATION
     Dosage: 8582 MG, DAILY
     Route: 048
  5. TRAMADOL HCL [Suspect]
     Indication: OSTEOPOROSIS
  6. FELODIPINE [Concomitant]
     Indication: HYPOTENSION
     Dosage: 10 MG, DAILY
     Route: 048
     Dates: start: 20050929
  7. CHONDROITIN SULFATE [Concomitant]
     Indication: PRODUCT USED FOR UNKNOWN INDICATION
  8. ACETAMINOPHEN [Concomitant]
     Indication: OSTEOARTHRITIS
     Dosage: 1 G, TID
     Route: 048
     Dates: start: 20090731
  9. CRESTOR [Concomitant]
     Indication: PRODUCT USED FOR UNKNOWN INDICATION
     Dosage: 20 MG, DAILY
     Dates: start: 20071102
  10. DULCOLAX [Concomitant]
     Indication: PRODUCT USED FOR UNKNOWN INDICATION
     Route: 048

REACTIONS (2)
  - CARDIAC ARREST [None]
  - ARRHYTHMIA [None]
